FAERS Safety Report 7553099-8 (Version None)
Quarter: 2011Q2

REPORT INFORMATION
  Report Type: 
  Country: None (occurrence: None)
  Receive Date: 20110616
  Receipt Date: 20091010
  Transmission Date: 20111010
  Serious: Yes (Other)
  Sender: FDA-Public Use
  Company Number: US-BAYER-200935500NA

PATIENT
  Age: 67 Year
  Sex: Male
  Weight: 100 kg

DRUGS (10)
  1. TRASYLOL [Suspect]
     Dosage: PERFUSION PUMP PRIME 200 ML
     Route: 042
     Dates: start: 20040816, end: 20040816
  2. ACETYLSALICYLIC ACID SRT [Concomitant]
     Dosage: 325 MG, UNK
     Route: 048
  3. COREG [Concomitant]
     Dosage: 3.125 MG, BID
     Route: 048
  4. HEPARIN [Concomitant]
     Dosage: 50000 U, UNK
     Route: 042
  5. NORVASC [Concomitant]
     Dosage: 10 MG, UNK
     Route: 048
  6. TRASYLOL [Suspect]
     Indication: CORONARY ARTERY BYPASS
     Dosage: 1 ML, ONCE, INITIAL DOSE
     Route: 042
     Dates: start: 20040816, end: 20040816
  7. ZETIA [Concomitant]
  8. ZOCOR [Concomitant]
  9. TOPROL-XL [Concomitant]
  10. FUROSEMIDE [Concomitant]
     Dosage: 40 MG, UNK
     Route: 048

REACTIONS (13)
  - INJURY [None]
  - EMOTIONAL DISTRESS [None]
  - STRESS [None]
  - UNEVALUABLE EVENT [None]
  - RENAL FAILURE ACUTE [None]
  - MULTI-ORGAN FAILURE [None]
  - RENAL INJURY [None]
  - RENAL FAILURE [None]
  - ANXIETY [None]
  - FEAR [None]
  - ANHEDONIA [None]
  - RENAL IMPAIRMENT [None]
  - PAIN [None]
